FAERS Safety Report 18156061 (Version 1)
Quarter: 2020Q3

REPORT INFORMATION
  Report Type: Spontaneous
  Country: DE (occurrence: DE)
  Receive Date: 20200817
  Receipt Date: 20200817
  Transmission Date: 20201103
  Serious: Yes (Other)
  Sender: FDA-Public Use
  Company Number: DE-TEVA-2020-DE-1814007

PATIENT
  Age: 41 Year
  Sex: Male
  Weight: 115 kg

DRUGS (2)
  1. RAMIPRIL BETA 5MG [Suspect]
     Active Substance: RAMIPRIL
     Dosage: 10 MILLIGRAM DAILY;
     Dates: start: 201808
  2. METOPROLOL RATIOPHARM 50 [Suspect]
     Active Substance: METOPROLOL
     Dosage: 2 DOSAGE FORMS DAILY;
     Route: 065
     Dates: start: 201808

REACTIONS (3)
  - Muscle spasms [Not Recovered/Not Resolved]
  - Headache [Not Recovered/Not Resolved]
  - Erectile dysfunction [Not Recovered/Not Resolved]

NARRATIVE: CASE EVENT DATE: 201808
